FAERS Safety Report 4647518-4 (Version None)
Quarter: 2005Q2

REPORT INFORMATION
  Report Type: 
  Country: None (occurrence: None)
  Receive Date: 20050428
  Receipt Date: 20050404
  Transmission Date: 20051028
  Serious: Yes (Hospitalization)
  Sender: FDA-Public Use
  Company Number: PHRM2005FR01208

PATIENT
  Age: 17 Year
  Sex: Female

DRUGS (2)
  1. TRILEPTAL [Suspect]
     Dosage: 300 MG, BID
     Route: 048
     Dates: start: 20050209, end: 20050222
  2. KEPPRA [Concomitant]
     Dosage: 1 G, BID
     Dates: start: 20050209

REACTIONS (11)
  - CONVULSION [None]
  - DRUG RASH WITH EOSINOPHILIA AND SYSTEMIC SYMPTOMS [None]
  - EOSINOPHILIA [None]
  - GENERAL PHYSICAL HEALTH DETERIORATION [None]
  - HEPATIC ENCEPHALOPATHY [None]
  - HEPATITIS [None]
  - LYMPHADENOPATHY [None]
  - MYALGIA [None]
  - PYREXIA [None]
  - TRANSAMINASES INCREASED [None]
  - URTICARIA PAPULAR [None]
